FAERS Safety Report 9144638 (Version 3)
Quarter: 2014Q2

REPORT INFORMATION
  Report Type: Report from Study
  Country: US (occurrence: US)
  Receive Date: 20130306
  Receipt Date: 20140410
  Transmission Date: 20141212
  Serious: Yes (Death)
  Sender: FDA-Public Use
  Company Number: US-ROCHE-1195269

PATIENT
  Age: 89 Year
  Sex: Female
  Weight: 57.61 kg

DRUGS (22)
  1. RITUXIMAB [Suspect]
     Indication: GRANULOMATOSIS WITH POLYANGIITIS
     Dosage: ON 25/SEP/2012, THE PATIENT HAD DOSE OF RITUXIMAB 1000 MG/ME2 PRIOR TO SAE.
     Route: 042
     Dates: start: 20120912
  2. METHOTREXATE [Concomitant]
     Indication: GRANULOMATOSIS WITH POLYANGIITIS
     Route: 048
     Dates: start: 20120925
  3. FOLIC ACID [Concomitant]
     Indication: GRANULOMATOSIS WITH POLYANGIITIS
     Route: 048
     Dates: start: 20120925
  4. PREDNISONE [Concomitant]
     Indication: GRANULOMATOSIS WITH POLYANGIITIS
     Route: 048
     Dates: start: 20120913
  5. TRIMETHOPRIM [Concomitant]
     Indication: GRANULOMATOSIS WITH POLYANGIITIS
     Route: 048
     Dates: start: 20120914
  6. INSULIN [Concomitant]
     Route: 058
     Dates: start: 20120907
  7. CARVEDILOL [Concomitant]
     Route: 048
     Dates: start: 20080615
  8. AMLODIPINE [Concomitant]
     Route: 048
     Dates: start: 20080715
  9. SIMVASTATIN [Concomitant]
     Route: 048
     Dates: start: 20080715
  10. OMEPRAZOLE [Concomitant]
     Route: 048
     Dates: start: 20100715
  11. ASPIRIN [Concomitant]
     Route: 048
     Dates: start: 20080715
  12. COUMADIN [Concomitant]
     Route: 048
     Dates: start: 19990715
  13. SULFAMETHOXAZOLE [Concomitant]
     Indication: GRANULOMATOSIS WITH POLYANGIITIS
     Route: 048
     Dates: start: 20120914
  14. TYLENOL [Concomitant]
     Route: 048
     Dates: start: 20120912, end: 20120912
  15. TYLENOL [Concomitant]
     Route: 048
     Dates: start: 20120925, end: 20120925
  16. BENADRYL (UNITED STATES) [Concomitant]
     Route: 048
     Dates: start: 20120912, end: 20120912
  17. BENADRYL (UNITED STATES) [Concomitant]
     Route: 048
     Dates: start: 20120925, end: 20120925
  18. SOLU-MEDROL [Concomitant]
     Route: 042
     Dates: start: 20120912, end: 20120912
  19. SOLU-MEDROL [Concomitant]
     Route: 042
     Dates: start: 20120925, end: 20120925
  20. CEPHALEXIN [Concomitant]
     Route: 048
     Dates: start: 20120925
  21. SYSTANE [Concomitant]
     Dosage: GTT DROP
     Route: 047
  22. ENOXAPARIN [Concomitant]
     Route: 058
     Dates: start: 20120914

REACTIONS (1)
  - Death [Fatal]
